FAERS Safety Report 17768831 (Version 1)
Quarter: 2020Q2

REPORT INFORMATION
  Report Type: Spontaneous
  Country: DE (occurrence: DE)
  Receive Date: 20200512
  Receipt Date: 20200512
  Transmission Date: 20200714
  Serious: Yes (Other)
  Sender: FDA-Public Use
  Company Number: DE-AUROBINDO-AUR-APL-2020-022417

PATIENT
  Age: 19 Year
  Sex: Female

DRUGS (6)
  1. MODAFINIL. [Suspect]
     Active Substance: MODAFINIL
     Indication: NARCOLEPSY
     Dosage: 100 MILLIGRAM (100 MG)
     Route: 065
  2. PITOLISANT [Concomitant]
     Active Substance: PITOLISANT
     Indication: NARCOLEPSY
     Dosage: 4.5 MILLIGRAM (4.5 MG)
     Route: 065
  3. VENLAFAXINE [Suspect]
     Active Substance: VENLAFAXINE HYDROCHLORIDE
     Indication: NARCOLEPSY
     Dosage: 37.5 MILLIGRAM (37.5 MG)
     Route: 065
  4. VENLAFAXINE [Suspect]
     Active Substance: VENLAFAXINE HYDROCHLORIDE
     Dosage: 75 MILLIGRAM (75 MG)
     Route: 065
  5. VENLAFAXINE [Suspect]
     Active Substance: VENLAFAXINE HYDROCHLORIDE
     Dosage: 75 MILLIGRAM (75 MG RETARD IN MORNING WAS STARTED)
     Route: 065
  6. VENLAFAXINE [Suspect]
     Active Substance: VENLAFAXINE HYDROCHLORIDE
     Dosage: 150 MILLIGRAM (150 MG IN WEEK 2)
     Route: 065

REACTIONS (6)
  - Suicidal ideation [Recovered/Resolved]
  - Product use in unapproved indication [Unknown]
  - Fall [Recovered/Resolved]
  - Intentional self-injury [Recovered/Resolved]
  - Cataplexy [Unknown]
  - Affect lability [Recovered/Resolved]
